FAERS Safety Report 6970906-8 (Version None)
Quarter: 2010Q3

REPORT INFORMATION
  Report Type: 
  Country: None (occurrence: None)
  Receive Date: 20100908
  Receipt Date: 20100812
  Transmission Date: 20110219
  Serious: Yes (Hospitalization, Other)
  Sender: FDA-Public Use
  Company Number: PHEH2007US07590

PATIENT
  Sex: Female
  Weight: 66.213 kg

DRUGS (44)
  1. AREDIA [Suspect]
     Indication: OSTEOPOROSIS
     Dosage: 30 MG, QW3
     Route: 042
     Dates: start: 20000101, end: 20051013
  2. REMICADE [Concomitant]
     Dosage: 350 MG / EVERY 6 WEEKS
  3. CHEMOTHERAPEUTICS NOS [Concomitant]
  4. METHOTREXATE [Concomitant]
  5. IMURAN [Concomitant]
     Dosage: 100 MG, DAILY
  6. QUESTRAN [Concomitant]
  7. PREDNISONE [Concomitant]
  8. DOXYCYCLINE [Concomitant]
  9. THALIDOMIDE [Concomitant]
     Indication: BEHCET'S SYNDROME
     Dosage: 100 MG, UNK
  10. RELAFEN [Concomitant]
     Dosage: 750 MG, BID
  11. VICODIN [Concomitant]
  12. GABAPENTIN [Concomitant]
  13. TRAZODONE HCL [Concomitant]
  14. ZOLOFT [Concomitant]
     Dosage: 200 MG / DAILY
  15. ASPIRIN [Concomitant]
     Dosage: 325 MG / DAILY
  16. NEURONTIN [Concomitant]
     Dosage: 400 MG / 3 X DAILY
  17. ERGOCALCIFEROL [Concomitant]
     Dosage: 400 UNITS / DAILY
  18. PROCRIT                            /00909301/ [Concomitant]
     Dosage: UNK
     Dates: end: 20030801
  19. FENTANYL CITRATE [Concomitant]
     Dosage: UNK
  20. VITAMIN B-12 [Concomitant]
  21. COMBIVENT                               /GFR/ [Concomitant]
  22. NYSTATIN [Concomitant]
  23. NEUTRA-PHOS [Concomitant]
  24. ENTERIC ASPIRIN [Concomitant]
  25. DARVOCET-N 100 [Concomitant]
  26. LIDOCAINE [Concomitant]
  27. DURAGESIC-100 [Concomitant]
  28. INFLUENZA VACCINE [Concomitant]
  29. ACETAMINOPHEN [Concomitant]
  30. BENADRYL ^PFIZER WARNER-LAMBERT^ [Concomitant]
  31. EVOXAC [Concomitant]
  32. MAGIC MOUTHWASH [Concomitant]
  33. AMBIEN [Concomitant]
  34. K-DUR [Concomitant]
  35. KEFLEX [Concomitant]
  36. PROTONIX [Concomitant]
  37. ROCEPHIN [Concomitant]
  38. CEFTRIAXONE [Concomitant]
  39. VANCOMYCIN [Concomitant]
  40. CLEOCIN [Concomitant]
  41. FLUCONAZOLE [Concomitant]
  42. CALCIUM [Concomitant]
  43. TUMS [Concomitant]
  44. CHLORHEXIDINE GLUCONATE [Concomitant]

REACTIONS (100)
  - ABDOMINAL MASS [None]
  - ACTIVITIES OF DAILY LIVING IMPAIRED [None]
  - ANAEMIA [None]
  - ANHEDONIA [None]
  - ANXIETY [None]
  - APHASIA [None]
  - ARTHRALGIA [None]
  - BACK PAIN [None]
  - BALANCE DISORDER [None]
  - BLOOD ANTIDIURETIC HORMONE DECREASED [None]
  - CENTRAL VENOUS CATHETERISATION [None]
  - COMA [None]
  - CONVULSION [None]
  - CUSHINGOID [None]
  - DEFORMITY [None]
  - DENTAL CARIES [None]
  - DIARRHOEA [None]
  - DYSARTHRIA [None]
  - EAR INFECTION STAPHYLOCOCCAL [None]
  - EMOTIONAL DISTRESS [None]
  - ENDODONTIC PROCEDURE [None]
  - ENDOTRACHEAL INTUBATION [None]
  - EPILEPSY [None]
  - FALL [None]
  - FATIGUE [None]
  - FOOT FRACTURE [None]
  - GAIT DISTURBANCE [None]
  - GINGIVAL DISORDER [None]
  - GINGIVITIS [None]
  - GRAND MAL CONVULSION [None]
  - HAEMORRHAGE [None]
  - HEADACHE [None]
  - HEPATIC ENZYME INCREASED [None]
  - HYPOAESTHESIA [None]
  - HYPOAESTHESIA FACIAL [None]
  - HYPOKALAEMIA [None]
  - HYPOKINESIA [None]
  - HYPOPHAGIA [None]
  - HYPOTENSION [None]
  - HYPOXIA [None]
  - HYPOXIC-ISCHAEMIC ENCEPHALOPATHY [None]
  - IMPAIRED HEALING [None]
  - INFARCTION [None]
  - INFECTION [None]
  - INFLUENZA [None]
  - INJURY [None]
  - INSOMNIA [None]
  - JAW DISORDER [None]
  - JOINT SPRAIN [None]
  - JOINT SWELLING [None]
  - JUDGEMENT IMPAIRED [None]
  - LACUNAR INFARCTION [None]
  - LARGE INTESTINAL ULCER [None]
  - LIFE EXPECTANCY SHORTENED [None]
  - LIVER INJURY [None]
  - LOSS OF CONSCIOUSNESS [None]
  - LOWER LIMB FRACTURE [None]
  - MECHANICAL VENTILATION [None]
  - MEMORY IMPAIRMENT [None]
  - MIDDLE INSOMNIA [None]
  - MIXED CONNECTIVE TISSUE DISEASE [None]
  - MOUTH ULCERATION [None]
  - MUCOSAL ULCERATION [None]
  - MUSCLE ATROPHY [None]
  - MUSCULOSKELETAL CHEST PAIN [None]
  - MYALGIA [None]
  - NERVOUS SYSTEM DISORDER [None]
  - NEUROPATHY PERIPHERAL [None]
  - OEDEMA PERIPHERAL [None]
  - OSTEOARTHRITIS [None]
  - OSTEONECROSIS OF JAW [None]
  - OSTEOPENIA [None]
  - OVARIAN DISORDER [None]
  - OVERDOSE [None]
  - PAIN [None]
  - PAIN IN JAW [None]
  - PERIODONTITIS [None]
  - PHYSICAL DISABILITY [None]
  - PITUITARY TUMOUR BENIGN [None]
  - PNEUMONIA ASPIRATION [None]
  - PYREXIA [None]
  - RADIUS FRACTURE [None]
  - RENAL FAILURE [None]
  - SALIVA ALTERED [None]
  - SJOGREN'S SYNDROME [None]
  - SKIN HYPERPIGMENTATION [None]
  - SKIN ULCER [None]
  - SPINAL OSTEOARTHRITIS [None]
  - TOOTH DISORDER [None]
  - TOOTH EXTRACTION [None]
  - TOOTH FRACTURE [None]
  - TOOTH LOSS [None]
  - TRANSFUSION [None]
  - UNRESPONSIVE TO STIMULI [None]
  - URINARY TRACT INFECTION [None]
  - VAGINAL ULCERATION [None]
  - VASCULITIS [None]
  - VIITH NERVE PARALYSIS [None]
  - VISUAL IMPAIRMENT [None]
  - WRIST FRACTURE [None]
